FAERS Safety Report 7316717-5 (Version None)
Quarter: 2011Q1

REPORT INFORMATION
  Report Type: 
  Country: None (occurrence: None)
  Receive Date: 20110226
  Receipt Date: 20100802
  Transmission Date: 20110831
  Serious: No
  Sender: FDA-Public Use
  Company Number: US-ALLERGAN-1009984US

PATIENT
  Age: 40 Year
  Sex: Male

DRUGS (4)
  1. HYDROCODONE BITARTRATE AND ACETAMINOPHEN [Concomitant]
     Indication: PAIN
     Dosage: 7.5 / 325 MG
  2. BOTOXA? [Suspect]
     Indication: MUSCLE SPASMS
     Dosage: UNK
     Route: 030
     Dates: start: 20090318, end: 20090318
  3. LIPITOR [Concomitant]
     Dosage: 20 MG, QD
  4. ALTACE [Concomitant]
     Indication: HYPERTENSION

REACTIONS (1)
  - MUSCLE INJURY [None]
